FAERS Safety Report 23673075 (Version 1)
Quarter: 2024Q1

REPORT INFORMATION
  Report Type: Spontaneous
  Country: NL (occurrence: NL)
  Receive Date: 20240326
  Receipt Date: 20240326
  Transmission Date: 20240410
  Serious: Yes (Hospitalization)
  Sender: FDA-Public Use
  Company Number: NL-SUN PHARMACEUTICAL INDUSTRIES LTD-2024RR-438468

PATIENT
  Age: 45 Year
  Sex: Male
  Weight: 65.2 kg

DRUGS (1)
  1. OLANZAPINE [Suspect]
     Active Substance: OLANZAPINE
     Indication: Schizophrenia
     Dosage: 10 MILLIGRAM, TID 3 X PER DAY 1 PIECE
     Route: 065
     Dates: start: 20200101

REACTIONS (1)
  - Intestinal pseudo-obstruction [Unknown]
